FAERS Safety Report 5284430-4 (Version None)
Quarter: 2007Q1

REPORT INFORMATION
  Report Type: 
  Country: None (occurrence: None)
  Receive Date: 20070328
  Receipt Date: 20070316
  Transmission Date: 20070707
  Serious: Yes (Other)
  Sender: FDA-Public Use
  Company Number: GXKR2007BR02673

PATIENT
  Age: 16 Year
  Sex: Male

DRUGS (4)
  1. SERTRALINE [Suspect]
     Indication: MAJOR DEPRESSION
     Dosage: 50 MG/DAY,
  2. VALPROIC ACID [Concomitant]
  3. LAMOTRIGINE [Concomitant]
  4. PHENOBARBITAL TAB [Concomitant]

REACTIONS (2)
  - DISEASE PROGRESSION [None]
  - EPILEPSY [None]
